FAERS Safety Report 7536566-2 (Version None)
Quarter: 2011Q2

REPORT INFORMATION
  Report Type: 
  Country: None (occurrence: None)
  Receive Date: 20110608
  Receipt Date: 20110608
  Transmission Date: 20111010
  Serious: Yes (Life-Threatening, Hospitalization)
  Sender: FDA-Public Use
  Company Number: None

PATIENT
  Sex: Female
  Weight: 67 kg

DRUGS (1)
  1. AVELOX [Suspect]
     Indication: INFECTION
     Dosage: 400MG DAILY PO
     Route: 048
     Dates: start: 20110308, end: 20110308

REACTIONS (1)
  - ANAPHYLACTIC SHOCK [None]
